FAERS Safety Report 6227353-6 (Version None)
Quarter: 2009Q2

REPORT INFORMATION
  Report Type: 
  Country: None (occurrence: None)
  Receive Date: 20090612
  Receipt Date: 20090602
  Transmission Date: 20091009
  Serious: Yes (Other)
  Sender: FDA-Public Use
  Company Number: US-AMGEN-US350395

PATIENT
  Age: 61 Year
  Sex: Male

DRUGS (4)
  1. VECTIBIX [Suspect]
     Route: 042
  2. CETUXIMAB [Concomitant]
     Route: 042
  3. GEMCITABINE [Concomitant]
     Route: 042
  4. OXALIPLATIN [Concomitant]
     Route: 042

REACTIONS (1)
  - DERMATITIS ACNEIFORM [None]
